FAERS Safety Report 6833957-X (Version None)
Quarter: 2010Q3

REPORT INFORMATION
  Report Type: 
  Country: None (occurrence: None)
  Receive Date: 20100712
  Receipt Date: 20070405
  Transmission Date: 20110219
  Serious: No
  Sender: FDA-Public Use
  Company Number: US-PFIZER INC-2007028460

PATIENT
  Sex: Female
  Weight: 48.99 kg

DRUGS (3)
  1. CHANTIX [Suspect]
     Indication: SMOKING CESSATION THERAPY
     Dates: start: 20070404
  2. ALLERGY MEDICATION [Concomitant]
     Indication: MULTIPLE ALLERGIES
  3. NEXIUM [Concomitant]

REACTIONS (1)
  - POOR QUALITY SLEEP [None]
